FAERS Safety Report 16263383 (Version 1)
Quarter: 2019Q2

REPORT INFORMATION
  Report Type: Spontaneous
  Country: SE (occurrence: SE)
  Receive Date: 20190502
  Receipt Date: 20190502
  Transmission Date: 20190711
  Serious: Yes (Hospitalization)
  Sender: FDA-Public Use
  Company Number: SE-TEVA-2019-SE-1044756

PATIENT
  Age: 49 Year
  Sex: Female

DRUGS (3)
  1. OXASCAND [Suspect]
     Active Substance: OXAZEPAM
     Dosage: ^3-5 OXASCAND^
     Route: 048
     Dates: start: 20190311, end: 20190311
  2. STESOLID [Suspect]
     Active Substance: DIAZEPAM
     Dosage: ^3-5 STESOLID^
     Route: 048
     Dates: start: 20190311, end: 20190311
  3. DIMOR [Suspect]
     Active Substance: LOPERAMIDE
     Route: 048
     Dates: start: 20190311, end: 20190311

REACTIONS (4)
  - Depressed level of consciousness [Unknown]
  - Intentional overdose [Unknown]
  - Fatigue [Unknown]
  - Suicide attempt [Unknown]

NARRATIVE: CASE EVENT DATE: 20190311
